FAERS Safety Report 15440101 (Version 1)
Quarter: 2018Q3

REPORT INFORMATION
  Report Type: Spontaneous
  Country: GR (occurrence: GR)
  Receive Date: 20180928
  Receipt Date: 20180928
  Transmission Date: 20181010
  Serious: Yes (Hospitalization, Disabling)
  Sender: FDA-Public Use
  Company Number: GR-CELLTRION INC.-2018GR022781

PATIENT

DRUGS (5)
  1. CALCIORAL                          /00207901/ [Concomitant]
     Active Substance: CALCIUM PHOSPHATE\ERGOCALCIFEROL
  2. INFLECTRA [Suspect]
     Active Substance: INFLIXIMAB-DYYB
     Indication: RHEUMATOID ARTHRITIS
     Dosage: UNK
     Route: 065
     Dates: start: 201802
  3. ZYLORIC [Concomitant]
     Active Substance: ALLOPURINOL
  4. DIOVAN [Concomitant]
     Active Substance: VALSARTAN
  5. T4 [Concomitant]
     Active Substance: LEVOTHYROXINE

REACTIONS (1)
  - Hip fracture [Recovering/Resolving]

NARRATIVE: CASE EVENT DATE: 201808
